FAERS Safety Report 7147308-7 (Version None)
Quarter: 2010Q4

REPORT INFORMATION
  Report Type: 
  Country: None (occurrence: None)
  Receive Date: 20101209
  Receipt Date: 20100111
  Transmission Date: 20110411
  Serious: Yes (Death, Hospitalization)
  Sender: FDA-Public Use
  Company Number: US-ACTELION-A-NJ2007-17042

PATIENT

DRUGS (1)
  1. BOSENTAN TABLET UNKNOWN MG [Suspect]
     Indication: PULMONARY ARTERIAL HYPERTENSION
     Route: 048
     Dates: start: 20070706

REACTIONS (10)
  - BURNING SENSATION [None]
  - COLD SWEAT [None]
  - CONDITION AGGRAVATED [None]
  - DEATH [None]
  - DIZZINESS [None]
  - DYSPNOEA [None]
  - FLUID RETENTION [None]
  - HOT FLUSH [None]
  - JOINT SWELLING [None]
  - LIMB OPERATION [None]
